FAERS Safety Report 19313302 (Version 1)
Quarter: 2021Q2

REPORT INFORMATION
  Report Type: Spontaneous
  Country: CA (occurrence: CA)
  Receive Date: 20210527
  Receipt Date: 20210527
  Transmission Date: 20210717
  Serious: Yes (Death, Other)
  Sender: FDA-Public Use
  Company Number: CA-DRREDDYS-USA/CAN/21/0135680

PATIENT
  Age: 74 Year
  Sex: Female

DRUGS (10)
  1. VOLTAREN EMULGEL [Suspect]
     Active Substance: DICLOFENAC DIETHYLAMINE
     Indication: PRODUCT USED FOR UNKNOWN INDICATION
     Route: 061
  2. ATORVASTATIN [Suspect]
     Active Substance: ATORVASTATIN
     Indication: PRODUCT USED FOR UNKNOWN INDICATION
     Route: 048
  3. AMLODIPINE [Suspect]
     Active Substance: AMLODIPINE BESYLATE
     Indication: PRODUCT USED FOR UNKNOWN INDICATION
     Route: 048
  4. DICYCLOMINE HYDROCHLORIDE. [Concomitant]
     Active Substance: DICYCLOMINE HYDROCHLORIDE
     Indication: PRODUCT USED FOR UNKNOWN INDICATION
     Route: 048
  5. SANDOSTATIN [Suspect]
     Active Substance: OCTREOTIDE ACETATE
     Indication: NEUROENDOCRINE TUMOUR
     Route: 058
  6. SANDOSTATIN LAR DEPOT [Suspect]
     Active Substance: OCTREOTIDE ACETATE
     Indication: NEUROENDOCRINE TUMOUR
     Route: 030
  7. EURO D [Concomitant]
     Indication: PRODUCT USED FOR UNKNOWN INDICATION
     Route: 048
  8. PROLIA PRE FILLED SYRINGE PRESERVATIVE?FREE [Concomitant]
     Indication: PRODUCT USED FOR UNKNOWN INDICATION
     Route: 058
  9. ACETAMINOPHEN/BUTALBITAL [Concomitant]
     Active Substance: ACETAMINOPHEN\BUTALBITAL
     Indication: PRODUCT USED FOR UNKNOWN INDICATION
     Route: 048
  10. PERINDOPRIL ERBUMINE. [Concomitant]
     Active Substance: PERINDOPRIL ERBUMINE
     Indication: PRODUCT USED FOR UNKNOWN INDICATION
     Route: 065

REACTIONS (22)
  - Arthralgia [Unknown]
  - Injection site reaction [Unknown]
  - Back pain [Unknown]
  - Discharge [Unknown]
  - Skin induration [Unknown]
  - Blood pressure systolic increased [Unknown]
  - Arthropod bite [Unknown]
  - Osteoarthritis [Unknown]
  - Skin lesion [Unknown]
  - Neck pain [Unknown]
  - Pruritus [Unknown]
  - Erythema [Unknown]
  - Eczema [Unknown]
  - Peripheral swelling [Unknown]
  - Sinusitis [Unknown]
  - Needle issue [Unknown]
  - Acne [Unknown]
  - Bronchitis [Unknown]
  - Fibromyalgia [Unknown]
  - Parotitis [Unknown]
  - Death [Fatal]
  - Rash [Unknown]
